FAERS Safety Report 19004005 (Version 1)
Quarter: 2021Q1

REPORT INFORMATION
  Report Type: Spontaneous
  Country: US (occurrence: US)
  Receive Date: 20210312
  Receipt Date: 20210312
  Transmission Date: 20210420
  Serious: No
  Sender: FDA-Public Use
  Company Number: US-TAKEDA-2021TUS014353

PATIENT
  Sex: Female

DRUGS (1)
  1. HYQVIA [Suspect]
     Active Substance: HUMAN IMMUNOGLOBULIN G\HYALURONIDASE RECOMBINANT HUMAN
     Indication: IMMUNODEFICIENCY COMMON VARIABLE
     Dosage: 12.5 GRAM, EVERY OTHER WEEK (OPPOSITE WEEKS)
     Route: 065

REACTIONS (5)
  - Infusion site swelling [Unknown]
  - Infusion site extravasation [Unknown]
  - Illness [Unknown]
  - Infusion site pain [Unknown]
  - Infusion site haemorrhage [Unknown]
